FAERS Safety Report 10073402 (Version 3)
Quarter: 2014Q2

REPORT INFORMATION
  Report Type: Report from Study
  Country: GB (occurrence: GB)
  Receive Date: 20140411
  Receipt Date: 20140603
  Transmission Date: 20141212
  Serious: Yes (Hospitalization)
  Sender: FDA-Public Use
  Company Number: GB-BRISTOL-MYERS SQUIBB COMPANY-19927110

PATIENT
  Age: 57 Year
  Sex: Male

DRUGS (12)
  1. ETOPOSIDE [Suspect]
     Indication: SMALL CELL LUNG CANCER
     Dosage: RECENT DOSE:29NOV13
     Dates: start: 20131108
  2. CARBOPLATIN [Suspect]
     Indication: SMALL CELL LUNG CANCER
     Dosage: RECENT DOSE:29NOV13
     Dates: start: 20131108
  3. CLOTRIMAZOLE [Concomitant]
     Route: 061
     Dates: start: 20131126
  4. METOCLOPRAMIDE [Concomitant]
     Route: 048
     Dates: start: 20131108
  5. DEMECLOCYCLINE [Concomitant]
     Dosage: 600MG: 14NOV13-29NOV13?300MG:29NOV13-11DEC13
     Route: 048
     Dates: start: 20131114
  6. SALBUTAMOL [Concomitant]
     Route: 055
  7. CIPROFLOXACIN [Concomitant]
     Route: 048
     Dates: start: 20131205, end: 20131212
  8. ATROVENT [Concomitant]
     Route: 055
  9. NEUPOGEN [Concomitant]
     Route: 058
  10. ALLOPURINOL [Concomitant]
     Route: 048
     Dates: start: 20131105, end: 20131211
  11. MORPHINE SULPHATE [Concomitant]
     Route: 048
     Dates: start: 20131108, end: 20131211
  12. FILGRASTIM [Concomitant]
     Route: 058
     Dates: start: 20131211, end: 20131214

REACTIONS (3)
  - Febrile neutropenia [Recovered/Resolved]
  - Ileal perforation [Recovered/Resolved]
  - Pulmonary embolism [Recovered/Resolved]
